FAERS Safety Report 21766927 (Version 1)
Quarter: 2022Q4

REPORT INFORMATION
  Report Type: Spontaneous
  Country: CA (occurrence: CA)
  Receive Date: 20221222
  Receipt Date: 20221222
  Transmission Date: 20230112
  Serious: Yes (Other)
  Sender: FDA-Public Use
  Company Number: CA-AMERICAN REGENT INC-2022003624

PATIENT
  Age: 54 Year
  Sex: Female

DRUGS (1)
  1. VENOFER [Suspect]
     Active Substance: IRON SUCROSE
     Indication: Iron deficiency anaemia
     Dosage: 300 MILLIGRAM

REACTIONS (6)
  - Blood pressure fluctuation [Unknown]
  - Burning sensation [Unknown]
  - Erythema [Unknown]
  - Urticaria [Unknown]
  - Paraesthesia [Unknown]
  - Peripheral swelling [Unknown]
